FAERS Safety Report 9501549 (Version 1)
Quarter: 2013Q1

REPORT INFORMATION
  Report Type: Spontaneous
  Country: US (occurrence: None)
  Receive Date: 20130107
  Receipt Date: 20130107
  Transmission Date: 20140127
  Serious: Yes (Hospitalization)
  Sender: FDA-Public Use
  Company Number: PHEH2012US021330

PATIENT
  Age: 34 Year
  Sex: Male

DRUGS (1)
  1. GILENYA (FINGOLIMOD) UNKNOWN [Suspect]
     Indication: MULTIPLE SCLEROSIS
     Route: 048
     Dates: start: 20121029, end: 20121029

REACTIONS (3)
  - Atrioventricular block second degree [None]
  - Heart rate decreased [None]
  - Dizziness [None]
